FAERS Safety Report 23203739 (Version 3)
Quarter: 2023Q4

REPORT INFORMATION
  Report Type: Spontaneous
  Country: JP (occurrence: JP)
  Receive Date: 20231120
  Receipt Date: 20231218
  Transmission Date: 20240110
  Serious: Yes (Death, Life-Threatening, Other)
  Sender: FDA-Public Use
  Company Number: JP-MSD-M2023-48966

PATIENT
  Age: 9 Decade
  Sex: Female

DRUGS (1)
  1. ZERBAXA [Suspect]
     Active Substance: CEFTOLOZANE SULFATE\TAZOBACTAM SODIUM
     Indication: Urosepsis
     Dosage: 1500 MILLIGRAM, TID
     Route: 041
     Dates: start: 20231101, end: 20231101

REACTIONS (5)
  - Brain stem infarction [Fatal]
  - Shock [Recovered/Resolved]
  - Urinary tract infection [Unknown]
  - Condition aggravated [Unknown]
  - Bacterial infection [Unknown]

NARRATIVE: CASE EVENT DATE: 20231101
